FAERS Safety Report 4355162-1 (Version None)
Quarter: 2004Q2

REPORT INFORMATION
  Report Type: 
  Country: None (occurrence: None)
  Receive Date: 20040504
  Receipt Date: 20040423
  Transmission Date: 20050107
  Serious: Yes (Hospitalization)
  Sender: FDA-Public Use
  Company Number: 2004210456FR

PATIENT

DRUGS (3)
  1. CAMPTOSAR [Suspect]
     Indication: COLON CANCER METASTATIC
     Dosage: IV
     Route: 042
     Dates: start: 20040316
  2. UFT [Suspect]
     Indication: COLON CANCER METASTATIC
     Dosage: IV
     Route: 042
     Dates: start: 20040316
  3. LEUCOVORIN CALCIUM [Suspect]
     Indication: COLON CANCER METASTATIC
     Dosage: IV
     Route: 042
     Dates: start: 20040316

REACTIONS (2)
  - HYPONATRAEMIA [None]
  - VOMITING [None]
